FAERS Safety Report 6602467-7 (Version None)
Quarter: 2010Q1

REPORT INFORMATION
  Report Type: 
  Country: None (occurrence: None)
  Receive Date: 20100225
  Receipt Date: 20100215
  Transmission Date: 20100710
  Serious: Yes (Other)
  Sender: FDA-Public Use
  Company Number: US-JNJFOC-20100200850

PATIENT
  Age: 62 Year
  Sex: Female
  Weight: 70.76 kg

DRUGS (8)
  1. TYLENOL [Suspect]
     Route: 048
  2. TYLENOL [Suspect]
     Indication: FIBROMYALGIA
     Dosage: EVERY 4-6 HOURS
     Route: 048
  3. ACIPHEX [Concomitant]
     Indication: GASTROOESOPHAGEAL REFLUX DISEASE
  4. ATENOLOL [Concomitant]
     Indication: ARRHYTHMIA
  5. ATENOLOL [Concomitant]
     Indication: HYPERTENSION
  6. CALCIUM [Concomitant]
     Indication: MEDICAL DIET
  7. NEXIUM [Concomitant]
     Indication: GASTROOESOPHAGEAL REFLUX DISEASE
  8. LORTAB [Concomitant]
     Indication: PAIN

REACTIONS (4)
  - COLITIS [None]
  - INAPPROPRIATE SCHEDULE OF DRUG ADMINISTRATION [None]
  - PRODUCT QUALITY ISSUE [None]
  - WEIGHT DECREASED [None]
